FAERS Safety Report 5748315-9 (Version None)
Quarter: 2008Q2

REPORT INFORMATION
  Report Type: 
  Country: None (occurrence: None)
  Receive Date: 20080520
  Receipt Date: 20080506
  Transmission Date: 20081010
  Serious: Yes (Other)
  Sender: FDA-Public Use
  Company Number: 2008SP008639

PATIENT
  Age: 11 Year
  Sex: Male

DRUGS (2)
  1. CLARITIN [Suspect]
     Indication: RHINORRHOEA
     Dosage: 10 MG;QD;PO
     Route: 048
  2. CLARITIN [Suspect]
     Indication: SNEEZING
     Dosage: 10 MG;QD;PO
     Route: 048

REACTIONS (3)
  - AGGRESSION [None]
  - FEAR [None]
  - SLEEP TERROR [None]
